FAERS Safety Report 13575781 (Version 1)
Quarter: 2017Q2

REPORT INFORMATION
  Report Type: Report from Study
  Country: CA (occurrence: CA)
  Receive Date: 20170524
  Receipt Date: 20170524
  Transmission Date: 20170830
  Serious: Yes (Disabling)
  Sender: FDA-Public Use
  Company Number: CA-AMGEN-CANSL2017077976

PATIENT
  Age: 76 Year
  Sex: Female
  Weight: 62.5 kg

DRUGS (2)
  1. KYPROLIS [Suspect]
     Active Substance: CARFILZOMIB
     Indication: PLASMA CELL MYELOMA
     Dosage: 44 MG, CYCLES
     Route: 042
     Dates: start: 20161222
  2. KYPROLIS [Suspect]
     Active Substance: CARFILZOMIB
     Dosage: 44 MG, ON DAY 1, 2, 8, 9, 15 AND 16
     Route: 042
     Dates: start: 20170518

REACTIONS (2)
  - Nausea [Recovered/Resolved with Sequelae]
  - Pallor [Not Recovered/Not Resolved]

NARRATIVE: CASE EVENT DATE: 20170518
